FAERS Safety Report 4272618-0 (Version None)
Quarter: 2004Q1

REPORT INFORMATION
  Report Type: 
  Country: None (occurrence: None)
  Receive Date: 20040114
  Receipt Date: 20040114
  Transmission Date: 20041129
  Serious: Yes (Hospitalization)
  Sender: FDA-Public Use
  Company Number: None

PATIENT
  Sex: Female
  Weight: 86.1834 kg

DRUGS (12)
  1. LINDANE [Suspect]
     Indication: LICE INFESTATION
     Dosage: APPLY EVERY 2 WEEKS
     Dates: start: 20030707, end: 20030801
  2. INSULIN [Concomitant]
  3. LOPID [Concomitant]
  4. VASOTEC [Concomitant]
  5. NITROGLYCERIN [Concomitant]
  6. PREVACID [Concomitant]
  7. ZOLOFT [Concomitant]
  8. XANAX [Concomitant]
  9. AMBIEN [Concomitant]
  10. DARVOCET [Concomitant]
  11. INHALERS FOR COPD [Concomitant]
  12. OXYGEN [Concomitant]

REACTIONS (10)
  - ANOREXIA [None]
  - CONVERSION DISORDER [None]
  - CRYING [None]
  - DECREASED INTEREST [None]
  - DEPRESSION [None]
  - FEAR [None]
  - PALPITATIONS [None]
  - PSYCHOTIC DISORDER [None]
  - SUICIDAL IDEATION [None]
  - TREATMENT NONCOMPLIANCE [None]
